FAERS Safety Report 7241504-6 (Version None)
Quarter: 2011Q1

REPORT INFORMATION
  Report Type: 
  Country: None (occurrence: None)
  Receive Date: 20110124
  Receipt Date: 20110112
  Transmission Date: 20110831
  Serious: Yes (Other)
  Sender: FDA-Public Use
  Company Number: JP-SANOFI-AVENTIS-2011SA003847

PATIENT
  Age: 75 Year
  Sex: Male

DRUGS (9)
  1. CALCIUM LEVOFOLINATE [Suspect]
     Indication: RECTAL CANCER
     Route: 041
     Dates: start: 20081001, end: 20081001
  2. CALCIUM LEVOFOLINATE [Suspect]
     Route: 041
     Dates: start: 20100201, end: 20100201
  3. AVASTIN [Suspect]
     Indication: RECTAL CANCER
     Route: 041
     Dates: start: 20100201, end: 20100201
  4. 5-FU [Suspect]
     Route: 040
     Dates: start: 20100201, end: 20100201
  5. 5-FU [Suspect]
     Indication: RECTAL CANCER
     Route: 040
     Dates: start: 20081001, end: 20081001
  6. ELPLAT [Suspect]
     Indication: RECTAL CANCER
     Route: 041
     Dates: start: 20081001, end: 20081001
  7. ELPLAT [Suspect]
     Route: 041
     Dates: start: 20100201, end: 20100201
  8. 5-FU [Suspect]
     Route: 041
     Dates: start: 20081001, end: 20081001
  9. 5-FU [Suspect]
     Route: 041
     Dates: start: 20100201, end: 20100201

REACTIONS (2)
  - HEPATIC ENCEPHALOPATHY [None]
  - HYPERAMMONAEMIA [None]
